FAERS Safety Report 17805070 (Version 2)
Quarter: 2020Q2

REPORT INFORMATION
  Report Type: Spontaneous
  Country: RU (occurrence: RU)
  Receive Date: 20200519
  Receipt Date: 20200529
  Transmission Date: 20200714
  Serious: Yes (Other)
  Sender: FDA-Public Use
  Company Number: NVSC2020RU137075

PATIENT
  Age: 70 Year
  Sex: Female

DRUGS (2)
  1. CAPECITABINE. [Suspect]
     Active Substance: CAPECITABINE
     Indication: GASTRIC CANCER
     Dosage: 1850 MG/M2 (2 DOSES WITH AN INTERVAL OF 12 HOURS)
     Route: 048
     Dates: start: 20130218, end: 20130314
  2. OXALIPLATIN. [Suspect]
     Active Substance: OXALIPLATIN
     Indication: GASTRIC CANCER
     Dosage: 85 MG/M2 (ON THE 1ST AND 21ST DAYS)
     Route: 042
     Dates: start: 20130218, end: 20130314

REACTIONS (3)
  - Product use in unapproved indication [Unknown]
  - Aspartate aminotransferase increased [Unknown]
  - Hepatotoxicity [Unknown]
